FAERS Safety Report 13255895 (Version 1)
Quarter: 2017Q1

REPORT INFORMATION
  Report Type: Spontaneous
  Country: ID (occurrence: ID)
  Receive Date: 20170221
  Receipt Date: 20170221
  Transmission Date: 20170428
  Serious: Yes (Life-Threatening, Hospitalization)
  Sender: FDA-Public Use
  Company Number: ID-SA-2017SA027833

PATIENT
  Age: 21 Year
  Sex: Female

DRUGS (4)
  1. RIFAMPICIN [Suspect]
     Active Substance: RIFAMPIN
     Indication: PULMONARY TUBERCULOSIS
     Route: 065
  2. PYRAZINAMIDE. [Suspect]
     Active Substance: PYRAZINAMIDE
     Indication: PULMONARY TUBERCULOSIS
     Route: 065
  3. ISONIAZID. [Suspect]
     Active Substance: ISONIAZID
     Indication: PULMONARY TUBERCULOSIS
     Route: 065
  4. ETHAMBUTOL [Suspect]
     Active Substance: ETHAMBUTOL HYDROCHLORIDE
     Indication: PULMONARY TUBERCULOSIS
     Route: 065

REACTIONS (12)
  - Ammonia increased [Recovering/Resolving]
  - Hyperbilirubinaemia [Recovering/Resolving]
  - Acute hepatic failure [Recovering/Resolving]
  - Hepatic necrosis [Recovering/Resolving]
  - Prothrombin time prolonged [Recovering/Resolving]
  - Nausea [Recovering/Resolving]
  - Jaundice [Recovering/Resolving]
  - Systemic inflammatory response syndrome [Recovering/Resolving]
  - Liver injury [Recovering/Resolving]
  - Transaminases increased [Recovering/Resolving]
  - Encephalopathy [Recovering/Resolving]
  - Coagulopathy [Recovering/Resolving]
